FAERS Safety Report 24261724 (Version 1)
Quarter: 2024Q3

REPORT INFORMATION
  Report Type: Spontaneous
  Country: DE (occurrence: DE)
  Receive Date: 20240829
  Receipt Date: 20240829
  Transmission Date: 20241016
  Serious: Yes (Other)
  Sender: JOHNSON AND JOHNSON
  Company Number: DE-JNJFOC-20240857128

PATIENT

DRUGS (1)
  1. SPRAVATO [Suspect]
     Active Substance: ESKETAMINE
     Indication: Depression

REACTIONS (8)
  - Hallucination [Unknown]
  - Dizziness [Unknown]
  - Dissociation [Unknown]
  - Nausea [Unknown]
  - Anxiety [Unknown]
  - Restlessness [Unknown]
  - Tremor [Unknown]
  - Treatment noncompliance [Unknown]
